FAERS Safety Report 23104553 (Version 2)
Quarter: 2023Q4

REPORT INFORMATION
  Report Type: Report from Study
  Country: AU (occurrence: None)
  Receive Date: 20231025
  Receipt Date: 20231118
  Transmission Date: 20240110
  Serious: Yes (Hospitalization)
  Sender: FDA-Public Use
  Company Number: AU-ROCHE-3441859

PATIENT
  Age: 43 Year
  Sex: Male

DRUGS (11)
  1. RITUXIMAB [Suspect]
     Active Substance: RITUXIMAB
     Indication: Diffuse large B-cell lymphoma
     Dosage: DATE LAST DOSE GIVEN PRIOR TO SAE 19/SEP/2023?ON DAY 1 OF EVERY 21-DAY CYCLE AS PER PROTOCOL
     Route: 041
     Dates: start: 20230627
  2. CYCLOPHOSPHAMIDE [Suspect]
     Active Substance: CYCLOPHOSPHAMIDE
     Indication: Diffuse large B-cell lymphoma
     Dosage: DATE LAST DOSE GIVEN PRIOR TO SAE 19/SEP/2023?ON DAY 1 OF EVERY 21-DAY CYCLE AS PER PROTOCOL
     Route: 042
     Dates: start: 20230627
  3. DOXORUBICIN [Suspect]
     Active Substance: DOXORUBICIN
     Indication: Diffuse large B-cell lymphoma
     Dosage: DATE LAST DOSE GIVEN PRIOR TO SAE 19/SEP/2023?ON DAY 1 OF EVERY 21-DAY CYCLE AS PER PROTOCOL
     Route: 042
     Dates: start: 20230627
  4. PREDNISOLONE [Suspect]
     Active Substance: PREDNISOLONE
     Indication: Diffuse large B-cell lymphoma
     Dosage: DATE LAST DOSE GIVEN PRIOR TO SAE 23/SEP/2023?DAILY X 5
     Route: 048
     Dates: start: 20230628
  5. POLATUZUMAB VEDOTIN [Suspect]
     Active Substance: POLATUZUMAB VEDOTIN
     Indication: Diffuse large B-cell lymphoma
     Dosage: DATE LAST DOSE GIVEN PRIOR TO SAE 19/SEP/2023?ON DAY 1 OF EVERY 21-DAY CYCLE AS PER PROTOCOL
     Route: 042
     Dates: start: 20230627
  6. GLOFITAMAB [Suspect]
     Active Substance: GLOFITAMAB
     Indication: Diffuse large B-cell lymphoma
     Dosage: DATE LAST DOSE GIVEN PRIOR TO SAE 17/OCT/2023?ON DAY 1 OF EVERY 21-DAY CYCLE AS PER PROTOCOL
     Route: 042
     Dates: start: 20230704
  7. VALACYCLOVIR HYDROCHLORIDE [Concomitant]
     Active Substance: VALACYCLOVIR HYDROCHLORIDE
     Route: 048
     Dates: start: 20230606
  8. BACTRIM [Concomitant]
     Active Substance: SULFAMETHOXAZOLE\TRIMETHOPRIM
     Dosage: DOSE: 160/800 MG
     Route: 048
     Dates: start: 20230606
  9. PANTOPRAZOLE [Concomitant]
     Active Substance: PANTOPRAZOLE
     Route: 048
     Dates: start: 20230605
  10. METOCLOPRAMIDE [Concomitant]
     Active Substance: METOCLOPRAMIDE
     Route: 048
     Dates: start: 20230605
  11. IVERMECTIN [Concomitant]
     Active Substance: IVERMECTIN
     Route: 061
     Dates: start: 20230922

REACTIONS (1)
  - Pyrexia [Recovered/Resolved]

NARRATIVE: CASE EVENT DATE: 20231017
